FAERS Safety Report 12144514 (Version 3)
Quarter: 2016Q2

REPORT INFORMATION
  Report Type: Spontaneous
  Country: AU (occurrence: AU)
  Receive Date: 20160304
  Receipt Date: 20160415
  Transmission Date: 20160815
  Serious: Yes (Death, Other)
  Sender: FDA-Public Use
  Company Number: AU-009507513-1509AUS000564

PATIENT
  Age: 77 Year
  Sex: Male
  Weight: 68 kg

DRUGS (1)
  1. KEYTRUDA [Suspect]
     Active Substance: PEMBROLIZUMAB
     Indication: PROSTATE CANCER
     Dosage: 2 MG/KG, Q3W (CYCLE ONE TO FIVE)
     Route: 042
     Dates: start: 20150910, end: 20151108

REACTIONS (2)
  - Product use issue [Unknown]
  - Prostate cancer [Fatal]

NARRATIVE: CASE EVENT DATE: 20150910
